FAERS Safety Report 15353747 (Version 1)
Quarter: 2018Q3

REPORT INFORMATION
  Report Type: Report from Study
  Country: US (occurrence: US)
  Receive Date: 20180905
  Receipt Date: 20180905
  Transmission Date: 20181010
  Serious: Yes (Hospitalization)
  Sender: FDA-Public Use
  Company Number: US-SHIRE-US201834031

PATIENT
  Age: 69 Year
  Sex: Male

DRUGS (1)
  1. GATTEX [Suspect]
     Active Substance: TEDUGLUTIDE\WATER
     Indication: SHORT-BOWEL SYNDROME
     Dosage: 3.98 MG, 1X/DAY:QD
     Route: 058

REACTIONS (2)
  - Cystitis [Unknown]
  - Haematuria [Unknown]

NARRATIVE: CASE EVENT DATE: 20180823
